FAERS Safety Report 16169448 (Version 1)
Quarter: 2019Q2

REPORT INFORMATION
  Report Type: Other
  Country: FR (occurrence: FR)
  Receive Date: 20190408
  Receipt Date: 20190408
  Transmission Date: 20190711
  Serious: Yes (Hospitalization, Other)
  Sender: FDA-Public Use
  Company Number: FR-APOTEX-2019AP011225

PATIENT
  Age: 73 Year
  Sex: Female

DRUGS (7)
  1. TELMISARTAN. [Concomitant]
     Active Substance: TELMISARTAN
     Indication: HYPERTENSION
     Dosage: 1 DF, QD
     Route: 048
  2. FEMARA [Concomitant]
     Active Substance: LETROZOLE
     Indication: PRODUCT USED FOR UNKNOWN INDICATION
     Dosage: 1 DF, QD
     Route: 048
  3. FENOFIBRATE. [Concomitant]
     Active Substance: FENOFIBRATE
     Indication: DYSLIPIDAEMIA
     Dosage: 1 DF, QD
     Route: 048
  4. ZOLPIDEM [Concomitant]
     Active Substance: ZOLPIDEM\ZOLPIDEM TARTRATE
     Indication: SLEEP DISORDER
     Dosage: 1 DF, QD
     Route: 048
     Dates: start: 20190307
  5. ADROVANCE [Concomitant]
     Active Substance: ALENDRONATE SODIUM\CHOLECALCIFEROL
     Indication: OSTEOPOROSIS
     Dosage: 1 DF, WE
     Route: 048
  6. DEROXAT [Suspect]
     Active Substance: PAROXETINE HYDROCHLORIDE
     Indication: ANXIETY DISORDER
     Dosage: 1 DF, QD
     Route: 048
     Dates: start: 20190301, end: 20190307
  7. ALPRAZOLAM. [Concomitant]
     Active Substance: ALPRAZOLAM
     Indication: ANXIETY
     Dosage: 1 DF, QD
     Route: 048
     Dates: start: 20190226

REACTIONS (5)
  - Bladder dilatation [Unknown]
  - Inappropriate antidiuretic hormone secretion [Recovering/Resolving]
  - Constipation [Not Recovered/Not Resolved]
  - Gait disturbance [Not Recovered/Not Resolved]
  - Fall [Not Recovered/Not Resolved]

NARRATIVE: CASE EVENT DATE: 20190306
